FAERS Safety Report 21152630 (Version 2)
Quarter: 2024Q2

REPORT INFORMATION
  Report Type: Spontaneous
  Country: US (occurrence: US)
  Receive Date: 20220730
  Receipt Date: 20240403
  Transmission Date: 20240716
  Serious: No
  Sender: FDA-Public Use
  Company Number: US-SA-SAC20220725000549

PATIENT
  Sex: Female
  Weight: 55.7 kg

DRUGS (2)
  1. DUPIXENT [Suspect]
     Active Substance: DUPILUMAB
     Indication: Asthma
     Dosage: 300 MG, QOW
     Route: 058
  2. DUPIXENT [Suspect]
     Active Substance: DUPILUMAB
     Indication: Osteoporosis

REACTIONS (5)
  - Chest pain [Unknown]
  - Fall [Unknown]
  - Fracture [Unknown]
  - Arterial occlusive disease [Unknown]
  - Product use in unapproved indication [Unknown]
